FAERS Safety Report 5961944-2 (Version None)
Quarter: 2008Q4

REPORT INFORMATION
  Report Type: 
  Country: None (occurrence: None)
  Receive Date: 20081121
  Receipt Date: 20081114
  Transmission Date: 20090506
  Serious: Yes (Death, Hospitalization, Other)
  Sender: FDA-Public Use
  Company Number: US-AMGEN-QUU319009

PATIENT
  Sex: Male

DRUGS (5)
  1. NEULASTA [Suspect]
     Indication: CHEMOTHERAPY
     Route: 065
  2. GEMZAR [Concomitant]
  3. CARBOPLATIN [Concomitant]
  4. NAVELBINE [Concomitant]
  5. AVASTIN [Concomitant]

REACTIONS (2)
  - DEATH [None]
  - PULMONARY OEDEMA [None]
